FAERS Safety Report 19384726 (Version 2)
Quarter: 2021Q2

REPORT INFORMATION
  Report Type: Spontaneous
  Country: US (occurrence: US)
  Receive Date: 20210608
  Receipt Date: 20210609
  Transmission Date: 20210717
  Serious: Yes (Other)
  Sender: FDA-Public Use
  Company Number: US-JNJFOC-20210558269

PATIENT
  Age: 76 Year
  Sex: Male

DRUGS (1)
  1. VISINE UNSPECIFIED [Suspect]
     Active Substance: TETRAHYDROZOLINE HYDROCHLORIDE
     Indication: PRODUCT USED FOR UNKNOWN INDICATION
     Dosage: 120 ML OF 0.05% TETRAHYDROZOLINE (EIGHT BOTTLES OF VISINE EYE DROPS)
     Route: 048

REACTIONS (5)
  - Atrioventricular block complete [Unknown]
  - Atrioventricular block first degree [Unknown]
  - Electrocardiogram QT prolonged [Unknown]
  - Intentional product misuse [Unknown]
  - Suicide attempt [Unknown]
